FAERS Safety Report 13078263 (Version 1)
Quarter: 2017Q1

REPORT INFORMATION
  Report Type: Spontaneous
  Country: CA (occurrence: CA)
  Receive Date: 20170102
  Receipt Date: 20170102
  Transmission Date: 20170428
  Serious: Yes (Disabling, Other)
  Sender: FDA-Public Use
  Company Number: CA-GLENMARK PHARMACEUTICALS INC, USA.-2016GMK025704

PATIENT
  Age: 55 Year
  Sex: Male

DRUGS (5)
  1. ASPIRIN                            /00002701/ [Suspect]
     Active Substance: ASPIRIN
     Indication: SYSTEMIC SCLERODERMA
     Dosage: UNK
     Route: 065
  2. PENTOXIFYLLINE. [Suspect]
     Active Substance: PENTOXIFYLLINE
     Indication: SYSTEMIC SCLERODERMA
     Dosage: UNK
     Route: 065
  3. ISOSORBIDE MONONITRATE. [Suspect]
     Active Substance: ISOSORBIDE MONONITRATE
     Indication: SYSTEMIC SCLERODERMA
     Dosage: UNK
     Route: 065
  4. TADALAFIL [Suspect]
     Active Substance: TADALAFIL
     Indication: SYSTEMIC SCLERODERMA
     Dosage: UNK
     Route: 065
  5. FELODIPINE. [Suspect]
     Active Substance: FELODIPINE
     Indication: SYSTEMIC SCLERODERMA
     Dosage: UNK
     Route: 065

REACTIONS (3)
  - Drug ineffective [Unknown]
  - Systemic scleroderma [Recovered/Resolved]
  - Abasia [Recovered/Resolved]
